FAERS Safety Report 7539191-2 (Version None)
Quarter: 2011Q2

REPORT INFORMATION
  Report Type: 
  Country: None (occurrence: None)
  Receive Date: 20110610
  Receipt Date: 20110531
  Transmission Date: 20111010
  Serious: Yes (Other)
  Sender: FDA-Public Use
  Company Number: AT-AMGEN-AUTNI2011028059

PATIENT
  Age: 51 Year
  Sex: Female

DRUGS (3)
  1. NEULASTA [Suspect]
     Indication: PRODUCT USED FOR UNKNOWN INDICATION
     Dosage: 6 MG, UNK
  2. DEXAMETHASONE [Concomitant]
     Dosage: 40 MG, UNK
  3. CAMPATH [Concomitant]
     Dosage: 30 MG, UNK

REACTIONS (4)
  - CYSTITIS [None]
  - CYTOMEGALOVIRUS INFECTION [None]
  - PYREXIA [None]
  - DYSPNOEA [None]
